FAERS Safety Report 5154099-8 (Version None)
Quarter: 2006Q4

REPORT INFORMATION
  Report Type: 
  Country: None (occurrence: None)
  Receive Date: 20061120
  Receipt Date: 20060430
  Transmission Date: 20070319
  Serious: Yes (Other)
  Sender: FDA-Public Use
  Company Number: PHEH2006US05710

PATIENT
  Age: 84 Year
  Sex: Female

DRUGS (1)
  1. GLEEVEC [Suspect]

REACTIONS (5)
  - ASTHENIA [None]
  - DRUG LEVEL INCREASED [None]
  - DRUG RESISTANCE [None]
  - INTESTINAL RESECTION [None]
  - OSTEOPOROSIS [None]
